FAERS Safety Report 8435945-9 (Version None)
Quarter: 2012Q2

REPORT INFORMATION
  Report Type: 
  Country: None (occurrence: None)
  Receive Date: 20120608
  Receipt Date: 20120608
  Transmission Date: 20120825
  Serious: Yes (Other)
  Sender: FDA-Public Use
  Company Number: None

PATIENT
  Age: 44 Year
  Sex: Male
  Weight: 88.4514 kg

DRUGS (1)
  1. LEVAQUIN [Suspect]
     Indication: STAPHYLOCOCCUS TEST POSITIVE
     Dosage: 1 TABLET, PER DAY, PO
     Route: 048
     Dates: start: 20120514, end: 20120517

REACTIONS (4)
  - ARTHRALGIA [None]
  - TENDON PAIN [None]
  - PAIN IN EXTREMITY [None]
  - MOBILITY DECREASED [None]
